FAERS Safety Report 7211366-1 (Version None)
Quarter: 2010Q4

REPORT INFORMATION
  Report Type: 
  Country: None (occurrence: None)
  Receive Date: 20101223
  Receipt Date: 20101215
  Transmission Date: 20110411
  Serious: Yes (Other)
  Sender: FDA-Public Use
  Company Number: 2010MA005337

PATIENT
  Age: 82 Year
  Sex: Female

DRUGS (14)
  1. AMLODIPINE BESYLATE [Suspect]
     Indication: HYPERTENSION
     Dosage: ; QD; PO
     Route: 048
     Dates: start: 20101001, end: 20101111
  2. MIACALCIN [Suspect]
     Indication: OSTEOPOROTIC FRACTURE
     Dosage: 200 IU; QD; NASAL
     Route: 045
     Dates: start: 20100816
  3. FURESIS [Concomitant]
  4. KLEXANE [Concomitant]
  5. EXELON [Concomitant]
  6. MEMANTINE HCL [Concomitant]
  7. LAXOBERON [Concomitant]
  8. CALCICHEW D3 [Concomitant]
  9. DURAGESIC-50 [Concomitant]
  10. PARA-TABS [Concomitant]
  11. OXYCODONE HCL [Concomitant]
  12. FURESIS [Concomitant]
  13. MYCOSTATIN [Concomitant]
  14. AVITA [Concomitant]

REACTIONS (3)
  - LYMPHOPENIA [None]
  - NEUTROPENIA [None]
  - WHITE BLOOD CELL COUNT DECREASED [None]
